FAERS Safety Report 9844282 (Version 1)
Quarter: 2014Q1

REPORT INFORMATION
  Report Type: Spontaneous
  Country: FI (occurrence: FI)
  Receive Date: 20140127
  Receipt Date: 20140127
  Transmission Date: 20141002
  Serious: Yes (Hospitalization)
  Sender: FDA-Public Use
  Company Number: FI-ACCORD-021428

PATIENT
  Age: 85 Year
  Sex: Male

DRUGS (13)
  1. CLOPIDOGREL [Suspect]
     Indication: AORTIC VALVE STENOSIS
     Dosage: 1 X 1
     Route: 048
     Dates: start: 201308, end: 20131227
  2. PRIMASPAN [Concomitant]
     Dosage: 1 X 1
     Route: 048
  3. APURIN [Concomitant]
     Dosage: 100 MG, 1 X 1
     Route: 048
  4. LEVOLAC [Concomitant]
     Dosage: 670 MG/L, 20ML X 1
     Route: 048
  5. CARDACE [Concomitant]
     Dosage: 2.5 MG, ? X 1
     Route: 048
     Dates: start: 201308
  6. SOMAC [Concomitant]
     Dosage: 40 MG, 1X 1
     Route: 048
  7. SPIRIVA RESPIMAT [Concomitant]
     Dosage: 2.5 MG, MICROG, 2X 1 (INHALATION LIQUID)
     Route: 055
  8. EMCONCOR CHF [Concomitant]
     Dosage: 2.5 MG, ? X 1
     Route: 048
  9. JANUVIA [Concomitant]
     Dosage: 50 MG
     Route: 048
  10. KALEORID [Concomitant]
     Dosage: 1 G, 1 X 1
     Route: 048
  11. PLAVIX [Suspect]
     Indication: AORTIC VALVE STENOSIS
     Dosage: 1X1
     Route: 048
     Dates: start: 201308, end: 20131227
  12. SYMBICORT TURBHALER [Concomitant]
     Dosage: 1 X 2
     Route: 055
  13. FURESIS [Concomitant]
     Dosage: 40 MG, 2 X 2
     Route: 048

REACTIONS (5)
  - Oropharyngeal pain [Unknown]
  - Rash [Not Recovered/Not Resolved]
  - Oral pain [Unknown]
  - Ulcer [Unknown]
  - Face oedema [Unknown]
